FAERS Safety Report 20052066 (Version 2)
Quarter: 2022Q1

REPORT INFORMATION
  Report Type: Report from Study
  Country: US (occurrence: None)
  Receive Date: 20211110
  Receipt Date: 20220314
  Transmission Date: 20220423
  Serious: Yes (Other)
  Sender: FDA-Public Use
  Company Number: US-ROCHE-2952679

PATIENT
  Age: 70 Year
  Sex: Female
  Weight: 48.1 kg

DRUGS (2)
  1. ATEZOLIZUMAB [Suspect]
     Active Substance: ATEZOLIZUMAB
     Indication: Lung adenocarcinoma
     Dosage: ON 17/MAY/2021, 14/JUN/2021, SUBSEQUENT DOSE OF ATEZOLIZUMAB 1680 MG.
     Route: 041
     Dates: start: 20210315
  2. COBIMETINIB [Suspect]
     Active Substance: COBIMETINIB
     Indication: Lung adenocarcinoma
     Dosage: SUBSEQUENT DOSE OF COBIMETINIB ON 14/JUN/2021.
     Route: 048
     Dates: start: 20210517

REACTIONS (1)
  - Anaemia [Unknown]

NARRATIVE: CASE EVENT DATE: 20210517
